FAERS Safety Report 7363854-5 (Version None)
Quarter: 2011Q1

REPORT INFORMATION
  Report Type: 
  Country: None (occurrence: None)
  Receive Date: 20110321
  Receipt Date: 20110310
  Transmission Date: 20110831
  Serious: Yes (Hospitalization, Other)
  Sender: FDA-Public Use
  Company Number: JP-PFIZER INC-2010108260

PATIENT
  Age: 61 Year
  Sex: Female

DRUGS (4)
  1. CARBOPLATIN [Concomitant]
     Indication: METASTASES TO CENTRAL NERVOUS SYSTEM
  2. CAMPTOSAR [Suspect]
     Indication: SMALL CELL CARCINOMA
     Dosage: UNK
     Route: 041
  3. CAMPTOSAR [Suspect]
     Indication: METASTASES TO CENTRAL NERVOUS SYSTEM
  4. CARBOPLATIN [Concomitant]
     Indication: SMALL CELL CARCINOMA
     Dosage: UNK
     Route: 041

REACTIONS (2)
  - PNEUMORETROPERITONEUM [None]
  - PNEUMATOSIS INTESTINALIS [None]
